FAERS Safety Report 6230503-9 (Version None)
Quarter: 2009Q2

REPORT INFORMATION
  Report Type: 
  Country: None (occurrence: None)
  Receive Date: 20090615
  Receipt Date: 20090603
  Transmission Date: 20091009
  Serious: No
  Sender: FDA-Public Use
  Company Number: US-ABBOTT-09P-163-0577599-00

PATIENT
  Sex: Female
  Weight: 68.1 kg

DRUGS (6)
  1. TRILIPIX [Suspect]
     Indication: BLOOD CHOLESTEROL INCREASED
     Route: 048
     Dates: start: 20090528, end: 20090530
  2. TRILIPIX [Suspect]
     Indication: BLOOD TRIGLYCERIDES INCREASED
  3. CARVELDOL [Concomitant]
     Indication: HYPERTENSION
  4. TRANSDERMAL PATCH [Concomitant]
     Indication: HYPERTENSION
     Route: 062
  5. HYZAR [Concomitant]
     Indication: DRUG USE FOR UNKNOWN INDICATION
  6. INSULIN [Concomitant]
     Indication: DRUG USE FOR UNKNOWN INDICATION
     Route: 058

REACTIONS (2)
  - HYPOACUSIS [None]
  - TINNITUS [None]
